FAERS Safety Report 17276778 (Version 2)
Quarter: 2020Q1

REPORT INFORMATION
  Report Type: Spontaneous
  Country: US (occurrence: US)
  Receive Date: 20200116
  Receipt Date: 20200203
  Transmission Date: 20200409
  Serious: No
  Sender: FDA-Public Use
  Company Number: US-PFIZER INC-2020017299

PATIENT
  Age: 63 Year
  Sex: Female

DRUGS (7)
  1. OTEZLA [Concomitant]
     Active Substance: APREMILAST
     Indication: PSORIATIC ARTHROPATHY
     Dosage: 30 MG, 2X/DAY (ONE BY MOUTH TWICE A DAY)
     Route: 048
  2. XELJANZ [Suspect]
     Active Substance: TOFACITINIB CITRATE
     Indication: PSORIATIC ARTHROPATHY
  3. XELJANZ [Suspect]
     Active Substance: TOFACITINIB CITRATE
     Indication: ACTINIC KERATOSIS
  4. XELJANZ [Suspect]
     Active Substance: TOFACITINIB CITRATE
     Indication: PSORIASIS
     Dosage: 5 MG, 2X/DAY
     Route: 048
     Dates: start: 20191101, end: 20191201
  5. SYNTHROID [Concomitant]
     Active Substance: LEVOTHYROXINE SODIUM
     Dosage: UNK
  6. VECTICAL [Concomitant]
     Active Substance: CALCITRIOL
     Indication: PSORIASIS
     Dosage: UNK UNK, 2X/DAY (3 MCG/GRAM)
     Route: 061
  7. VIVELLE [Concomitant]
     Active Substance: ESTRADIOL
     Dosage: UNK
     Route: 062

REACTIONS (7)
  - Diarrhoea [Unknown]
  - Weight increased [Unknown]
  - Drug ineffective [Unknown]
  - Nausea [Recovered/Resolved]
  - Polyuria [Unknown]
  - Fatigue [Recovered/Resolved]
  - Depression [Recovered/Resolved]
